FAERS Safety Report 8348992-2 (Version None)
Quarter: 2012Q2

REPORT INFORMATION
  Report Type: 
  Country: None (occurrence: None)
  Receive Date: 20120510
  Receipt Date: 20120504
  Transmission Date: 20120825
  Serious: Yes (Disabling)
  Sender: FDA-Public Use
  Company Number: FR-SANOFI-AVENTIS-2012SA031548

PATIENT
  Age: 73 Year
  Sex: Female

DRUGS (8)
  1. ALDACTONE [Suspect]
     Route: 048
  2. COUMADIN [Suspect]
     Route: 065
     Dates: end: 20101201
  3. LORAZEPAM [Concomitant]
  4. LASIX [Suspect]
     Route: 065
  5. METOPROLOL TARTRATE [Suspect]
     Route: 048
     Dates: end: 20101201
  6. LACTULOSE [Concomitant]
  7. CORDARONE [Suspect]
     Route: 048
     Dates: end: 20101201
  8. NEXIUM [Concomitant]

REACTIONS (2)
  - DYSPNOEA [None]
  - PULMONARY FIBROSIS [None]
